FAERS Safety Report 7833245-9 (Version None)
Quarter: 2011Q4

REPORT INFORMATION
  Report Type: 
  Country: None (occurrence: None)
  Receive Date: 20111024
  Receipt Date: 20111012
  Transmission Date: 20120403
  Serious: Yes (Other)
  Sender: FDA-Public Use
  Company Number: BR-JNJFOC-20111007971

PATIENT

DRUGS (2)
  1. TOPIRAMATE [Suspect]
     Indication: POST-TRAUMATIC STRESS DISORDER
     Dosage: STARTED AT 25 MG/DAY 1 DAILY, AT NIGHT, AND INCREASED IN 25 MG WEEKLY, INCREASED TO REACH 200 MG/DAY
     Route: 048
  2. TOPIRAMATE [Suspect]
     Dosage: ONCE DAILY AT NIGHT.
     Route: 048

REACTIONS (1)
  - ADVERSE EVENT [None]
